FAERS Safety Report 10995697 (Version 3)
Quarter: 2016Q1

REPORT INFORMATION
  Report Type: Report from Study
  Country: DE (occurrence: DE)
  Receive Date: 20150407
  Receipt Date: 20160211
  Transmission Date: 20160525
  Serious: Yes (Life-Threatening, Hospitalization, Other)
  Sender: FDA-Public Use
  Company Number: DE-ELI_LILLY_AND_COMPANY-DE201504000097

PATIENT
  Sex: Male

DRUGS (4)
  1. BELIX [Concomitant]
  2. METFORMIN [Concomitant]
     Active Substance: METFORMIN HYDROCHLORIDE
  3. METOPROLOL. [Concomitant]
     Active Substance: METOPROLOL
  4. ZYPADHERA [Suspect]
     Active Substance: OLANZAPINE PAMOATE
     Indication: SCHIZOPHRENIA
     Dosage: 405 MG, UNK
     Route: 030
     Dates: start: 20140722, end: 20150113

REACTIONS (3)
  - Suspected transmission of an infectious agent via product [Unknown]
  - Injection site abscess [Recovering/Resolving]
  - Erysipelas [Recovering/Resolving]

NARRATIVE: CASE EVENT DATE: 201501
